FAERS Safety Report 5724273-8 (Version None)
Quarter: 2008Q2

REPORT INFORMATION
  Report Type: 
  Country: None (occurrence: None)
  Receive Date: 20080430
  Receipt Date: 20080422
  Transmission Date: 20081010
  Serious: Yes (Disabling, Other)
  Sender: FDA-Public Use
  Company Number: BR-PFIZER INC-2008019582

PATIENT
  Sex: Female

DRUGS (3)
  1. FARLUTAL [Suspect]
     Indication: AMENORRHOEA
     Route: 048
  2. METFORMIN HCL [Concomitant]
     Route: 048
  3. FOLIC ACID [Concomitant]
     Route: 065

REACTIONS (11)
  - AMNIOTIC CAVITY DISORDER [None]
  - BREAST PAIN [None]
  - DEPRESSED MOOD [None]
  - EATING DISORDER [None]
  - FALL [None]
  - INSOMNIA [None]
  - MALAISE [None]
  - METRORRHAGIA [None]
  - PELVIC PAIN [None]
  - PREMATURE SEPARATION OF PLACENTA [None]
  - WEIGHT DECREASED [None]
